FAERS Safety Report 18847466 (Version 1)
Quarter: 2021Q1

REPORT INFORMATION
  Report Type: Report from Study
  Country: US (occurrence: US)
  Receive Date: 20210203
  Receipt Date: 20210203
  Transmission Date: 20210419
  Serious: No
  Sender: FDA-Public Use
  Company Number: US-EXELIXIS-CABO-20031840

PATIENT
  Age: 72 Year
  Sex: Male

DRUGS (3)
  1. CABOMETYX [Suspect]
     Active Substance: CABOZANTINIB S-MALATE
     Indication: METASTASES TO PANCREAS
  2. CABOMETYX [Suspect]
     Active Substance: CABOZANTINIB S-MALATE
     Indication: RENAL CELL CARCINOMA
     Dosage: 40 MG, QD
     Dates: start: 20200704, end: 20200728
  3. CABOMETYX [Suspect]
     Active Substance: CABOZANTINIB S-MALATE
     Indication: METASTASES TO LUNG
     Dosage: 20 MG, QD
     Dates: end: 20201008

REACTIONS (8)
  - Decreased appetite [Unknown]
  - Stomatitis [Unknown]
  - Diarrhoea [Unknown]
  - Tenderness [Unknown]
  - Skin ulcer [Unknown]
  - Dizziness [Unknown]
  - Blood pressure fluctuation [Unknown]
  - Flatulence [Unknown]

NARRATIVE: CASE EVENT DATE: 202007
